FAERS Safety Report 16375279 (Version 2)
Quarter: 2019Q4

REPORT INFORMATION
  Report Type: Spontaneous
  Country: US (occurrence: US)
  Receive Date: 20190531
  Receipt Date: 20191016
  Transmission Date: 20200122
  Serious: Yes (Other)
  Sender: FDA-Public Use
  Company Number: US-ASTRAZENECA-2019SE77284

PATIENT
  Age: 62 Year
  Sex: Female
  Weight: 86.2 kg

DRUGS (34)
  1. NEXIUM [Suspect]
     Active Substance: ESOMEPRAZOLE MAGNESIUM
     Indication: GASTROOESOPHAGEAL REFLUX DISEASE
     Route: 048
     Dates: start: 201406, end: 201409
  2. GABAPENTIN. [Concomitant]
     Active Substance: GABAPENTIN
     Indication: NERVE INJURY
     Dates: start: 2010
  3. LEVOTHYROXINE. [Concomitant]
     Active Substance: LEVOTHYROXINE
     Indication: THYROID THERAPY
     Dates: start: 2013
  4. SULFAMETHOXAZOLE [Concomitant]
     Active Substance: SULFAMETHOXAZOLE
  5. SIMVASTATIN. [Concomitant]
     Active Substance: SIMVASTATIN
  6. NEXIUM [Suspect]
     Active Substance: ESOMEPRAZOLE MAGNESIUM
     Indication: GASTROOESOPHAGEAL REFLUX DISEASE
     Route: 048
     Dates: start: 201309, end: 201311
  7. ATORVASTATIN [Concomitant]
     Active Substance: ATORVASTATIN
     Indication: BLOOD CHOLESTEROL INCREASED
     Dates: start: 2013
  8. HYDROCODONE [Concomitant]
     Active Substance: HYDROCODONE
  9. FERROUS SULFATE. [Concomitant]
     Active Substance: FERROUS SULFATE
  10. CLOTRIMAZOLE. [Concomitant]
     Active Substance: CLOTRIMAZOLE
  11. DIPHENHYDRAMINE. [Concomitant]
     Active Substance: DIPHENHYDRAMINE
  12. NEXIUM [Suspect]
     Active Substance: ESOMEPRAZOLE MAGNESIUM
     Indication: GASTROOESOPHAGEAL REFLUX DISEASE
     Route: 048
     Dates: start: 201404
  13. TIZANIDINE. [Concomitant]
     Active Substance: TIZANIDINE
     Indication: MYALGIA
     Dates: start: 2010
  14. NASONEX [Concomitant]
     Active Substance: MOMETASONE FUROATE
     Indication: MULTIPLE ALLERGIES
     Dates: start: 2010, end: 2015
  15. LORAZEPAM. [Concomitant]
     Active Substance: LORAZEPAM
  16. TIZANIDINE. [Concomitant]
     Active Substance: TIZANIDINE
  17. RELPAX [Concomitant]
     Active Substance: ELETRIPTAN HYDROBROMIDE
  18. MUPIROCIN. [Concomitant]
     Active Substance: MUPIROCIN
  19. ROPINIROLE. [Concomitant]
     Active Substance: ROPINIROLE
     Indication: RESTLESS LEGS SYNDROME
     Dates: start: 2010
  20. NEXIUM [Suspect]
     Active Substance: ESOMEPRAZOLE MAGNESIUM
     Indication: GASTROOESOPHAGEAL REFLUX DISEASE
     Route: 048
     Dates: start: 2013, end: 2014
  21. NEXIUM [Suspect]
     Active Substance: ESOMEPRAZOLE MAGNESIUM
     Indication: GASTROOESOPHAGEAL REFLUX DISEASE
     Route: 048
     Dates: start: 201007, end: 201009
  22. NEXIUM [Suspect]
     Active Substance: ESOMEPRAZOLE MAGNESIUM
     Indication: GASTROOESOPHAGEAL REFLUX DISEASE
     Route: 048
     Dates: start: 20100709
  23. AMLODIPINE [Concomitant]
     Active Substance: AMLODIPINE BESYLATE
     Indication: BLOOD PRESSURE ABNORMAL
     Dates: start: 2012, end: 2015
  24. OXYCODONE [Concomitant]
     Active Substance: OXYCODONE
  25. LISINOPRIL. [Concomitant]
     Active Substance: LISINOPRIL
  26. NEXIUM [Suspect]
     Active Substance: ESOMEPRAZOLE MAGNESIUM
     Indication: GASTROOESOPHAGEAL REFLUX DISEASE
     Route: 048
     Dates: start: 2010
  27. NEXIUM [Suspect]
     Active Substance: ESOMEPRAZOLE MAGNESIUM
     Indication: GASTROOESOPHAGEAL REFLUX DISEASE
     Route: 048
     Dates: start: 20130923
  28. ASPIRIN. [Concomitant]
     Active Substance: ASPIRIN
     Indication: CARDIAC DISORDER
     Dates: start: 2010
  29. DILTIAZEM. [Concomitant]
     Active Substance: DILTIAZEM
     Indication: CARDIAC DISORDER
     Dates: start: 2012
  30. MAXALT [Concomitant]
     Active Substance: RIZATRIPTAN BENZOATE
  31. CYMBALTA [Concomitant]
     Active Substance: DULOXETINE HYDROCHLORIDE
  32. CLONAZEPAM. [Concomitant]
     Active Substance: CLONAZEPAM
     Indication: ANXIETY
     Dates: start: 2010, end: 2014
  33. LIDODERM [Concomitant]
     Active Substance: LIDOCAINE
  34. ZALEPLON. [Concomitant]
     Active Substance: ZALEPLON

REACTIONS (1)
  - Renal failure [Not Recovered/Not Resolved]

NARRATIVE: CASE EVENT DATE: 2010
